FAERS Safety Report 18755063 (Version 1)
Quarter: 2021Q1

REPORT INFORMATION
  Report Type: Spontaneous
  Country: US (occurrence: US)
  Receive Date: 20210115
  Receipt Date: 20210115
  Transmission Date: 20210419
  Serious: Yes (Hospitalization)
  Sender: FDA-Public Use
  Company Number: None

PATIENT
  Age: 71 Year
  Sex: Male
  Weight: 63.5 kg

DRUGS (1)
  1. BAMLANIVIMAB. [Suspect]
     Active Substance: BAMLANIVIMAB
     Indication: COVID-19
     Route: 042

REACTIONS (6)
  - Chills [None]
  - Dyspnoea [None]
  - Oxygen saturation decreased [None]
  - Pyrexia [None]
  - Tremor [None]
  - Hypoxia [None]

NARRATIVE: CASE EVENT DATE: 20210114
